FAERS Safety Report 7546243-X (Version None)
Quarter: 2011Q2

REPORT INFORMATION
  Report Type: 
  Country: None (occurrence: None)
  Receive Date: 20110614
  Receipt Date: 20040518
  Transmission Date: 20111010
  Serious: Yes (Hospitalization, Other)
  Sender: FDA-Public Use
  Company Number: PHFR2004GB00461

PATIENT
  Sex: Female

DRUGS (3)
  1. CLOZAPINE [Suspect]
     Indication: SCHIZOPHRENIA
     Dosage: 300 MG, UNK
     Route: 048
     Dates: start: 20030624
  2. VALPROATE SODIUM [Concomitant]
     Dosage: 600 MG, BID
     Route: 048
  3. ATENOLOL [Concomitant]
     Route: 048

REACTIONS (5)
  - ISCHAEMIA [None]
  - PAIN IN EXTREMITY [None]
  - BLOOD PRESSURE ABNORMAL [None]
  - EMBOLISM [None]
  - PERIPHERAL VASCULAR DISORDER [None]
